FAERS Safety Report 11128746 (Version 2)
Quarter: 2015Q2

REPORT INFORMATION
  Report Type: Spontaneous
  Country: US (occurrence: US)
  Receive Date: 20150521
  Receipt Date: 20150609
  Transmission Date: 20150821
  Serious: No
  Sender: FDA-Public Use
  Company Number: US-BIOMARINAP-US-2015-106402

PATIENT
  Sex: Female
  Weight: 13.61 kg

DRUGS (1)
  1. VIMIZIM [Suspect]
     Active Substance: ELOSULFASE ALFA
     Indication: MUCOPOLYSACCHARIDOSIS IV
     Dosage: UNK, QW
     Route: 042
     Dates: start: 20140318

REACTIONS (4)
  - Middle ear effusion [Recovering/Resolving]
  - Nasal congestion [Not Recovered/Not Resolved]
  - Tonsillar hypertrophy [Recovering/Resolving]
  - Otitis media [Recovering/Resolving]
